FAERS Safety Report 10013419 (Version 2)
Quarter: 2014Q2

REPORT INFORMATION
  Report Type: Spontaneous
  Country: US (occurrence: US)
  Receive Date: 20140314
  Receipt Date: 20140423
  Transmission Date: 20141212
  Serious: No
  Sender: FDA-Public Use
  Company Number: US-PFIZER INC-2014073999

PATIENT
  Age: 46 Year
  Sex: Female

DRUGS (3)
  1. XANAX [Suspect]
     Dosage: 0.25 MG, UNK (1 EVERY 6 AS NEEDED)
  2. METOPROLOL [Suspect]
     Dosage: 50 MG, UNK
  3. VICODIN [Suspect]
     Dosage: UNK

REACTIONS (1)
  - Drug hypersensitivity [Unknown]
